FAERS Safety Report 4532748-2 (Version None)
Quarter: 2004Q4

REPORT INFORMATION
  Report Type: 
  Country: None (occurrence: None)
  Receive Date: 20041206
  Receipt Date: 20041001
  Transmission Date: 20050328
  Serious: No
  Sender: FDA-Public Use
  Company Number: USA041079873

PATIENT
  Age: 45 Year
  Sex: Female

DRUGS (8)
  1. CYMBALTA [Suspect]
     Dosage: 30 MG DAY
     Dates: start: 20040901
  2. PROZAC [Suspect]
     Dosage: 60 MG DAY    (DURATION: A FEW YEARS)
  3. KLONOPIN [Concomitant]
  4. WELLBUTRIN [Concomitant]
  5. TRILEPTAL [Concomitant]
  6. LITHIUM [Concomitant]
  7. BUSPAR [Concomitant]
  8. RISPERDAL [Concomitant]

REACTIONS (2)
  - LIP BLISTER [None]
  - THINKING ABNORMAL [None]
